FAERS Safety Report 11308101 (Version 1)
Quarter: 2015Q3

REPORT INFORMATION
  Report Type: Spontaneous
  Country: SZ (occurrence: CH)
  Receive Date: 20150724
  Receipt Date: 20150724
  Transmission Date: 20151125
  Serious: Yes (Death, Other)
  Sender: FDA-Public Use
  Company Number: SZ-BRISTOL-MYERS SQUIBB COMPANY-BMS-2015-046977

PATIENT
  Age: 52 Year
  Sex: Male
  Weight: 59 kg

DRUGS (10)
  1. IFOSFAMIDE. [Interacting]
     Active Substance: IFOSFAMIDE
     Indication: TESTICULAR CANCER METASTATIC
     Dosage: 3400 MG, QCYCLE
     Route: 041
     Dates: start: 20091208, end: 20100110
  2. CISPLATIN. [Interacting]
     Active Substance: CISPLATIN
     Indication: TESTIS CANCER
     Dosage: UNK
     Route: 041
     Dates: start: 1994, end: 1994
  3. ASPIRINE [Interacting]
     Active Substance: ASPIRIN
     Indication: CORONARY ARTERY DISEASE
     Dosage: 100 MG, QD
     Route: 048
     Dates: end: 20150310
  4. METO ZEROK [Concomitant]
     Active Substance: METOPROLOL SUCCINATE
     Indication: PRODUCT USED FOR UNKNOWN INDICATION
     Dosage: 25 MG, QD
     Route: 048
     Dates: end: 20150310
  5. BLEOMYCIN [Interacting]
     Active Substance: BLEOMYCIN SULFATE
     Indication: TESTIS CANCER
     Dosage: UNK
     Route: 041
     Dates: start: 1994, end: 1994
  6. ETOPOSIDE. [Suspect]
     Active Substance: ETOPOSIDE
     Indication: TESTIS CANCER
     Dosage: 2750 MG, TOTAL
     Route: 041
     Dates: start: 1994, end: 1994
  7. TAXOL [Interacting]
     Active Substance: PACLITAXEL
     Indication: TESTICULAR CANCER METASTATIC
     Dosage: 340 MG, QCYCLE
     Route: 041
     Dates: start: 20091207, end: 20100107
  8. PANTOPRAZOLE SODIUM. [Concomitant]
     Active Substance: PANTOPRAZOLE SODIUM
     Indication: PRODUCT USED FOR UNKNOWN INDICATION
     Dosage: 40 MG, QD
     Route: 048
     Dates: end: 20150310
  9. CARBOPLATIN. [Interacting]
     Active Substance: CARBOPLATIN
     Indication: TESTICULAR CANCER METASTATIC
     Dosage: 2800 MG, TOTAL
     Route: 041
     Dates: start: 20100125, end: 20100303
  10. ATORVASTATIN [Concomitant]
     Active Substance: ATORVASTATIN
     Indication: PRODUCT USED FOR UNKNOWN INDICATION
     Dosage: 40 MG, QD
     Route: 048
     Dates: end: 20150319

REACTIONS (5)
  - Malignant neoplasm progression [Unknown]
  - Myelodysplastic syndrome [Not Recovered/Not Resolved]
  - Off label use [Unknown]
  - Drug interaction [Unknown]
  - Haemoptysis [Fatal]

NARRATIVE: CASE EVENT DATE: 20150310
